FAERS Safety Report 6131833-1 (Version None)
Quarter: 2009Q1

REPORT INFORMATION
  Report Type: 
  Country: None (occurrence: None)
  Receive Date: 20090325
  Receipt Date: 20090316
  Transmission Date: 20090719
  Serious: Yes (Other)
  Sender: FDA-Public Use
  Company Number: US-JNJCH-2009005449

PATIENT
  Age: 5 Year
  Sex: Male

DRUGS (1)
  1. LISTERINE AGENT COOL BLUE BUBBLE BLAST [Suspect]
     Indication: DENTAL DISORDER PROPHYLAXIS
     Dosage: TEXT:RECOMMENDED DOSAGE 1X DAY FOR 1 DAY
     Route: 048
     Dates: start: 20090219, end: 20090220

REACTIONS (3)
  - GINGIVAL DISCOLOURATION [None]
  - TOOTH DISCOLOURATION [None]
  - WRONG DRUG ADMINISTERED [None]
